FAERS Safety Report 14716600 (Version 1)
Quarter: 2018Q2

REPORT INFORMATION
  Report Type: Spontaneous
  Country: US (occurrence: US)
  Receive Date: 20180404
  Receipt Date: 20180404
  Transmission Date: 20180711
  Serious: Yes (Death, Life-Threatening, Hospitalization)
  Sender: FDA-Public Use
  Company Number: US-BAUSCH-BL-2018-007800

PATIENT
  Age: 17 Year
  Sex: Male

DRUGS (1)
  1. MINOCYCLINE [Suspect]
     Active Substance: MINOCYCLINE\MINOCYCLINE HYDROCHLORIDE
     Indication: FOLLICULITIS
     Dosage: FOR 6 WEEKS
     Route: 065

REACTIONS (6)
  - Immune thrombocytopenic purpura [Unknown]
  - Autoimmune thyroiditis [Unknown]
  - Multiple organ dysfunction syndrome [Fatal]
  - Drug reaction with eosinophilia and systemic symptoms [Unknown]
  - Pemphigoid [Unknown]
  - Type 1 diabetes mellitus [Unknown]
